FAERS Safety Report 7831032-9 (Version None)
Quarter: 2011Q4

REPORT INFORMATION
  Report Type: 
  Country: None (occurrence: None)
  Receive Date: 20111021
  Receipt Date: 20111010
  Transmission Date: 20120403
  Serious: Yes (Hospitalization)
  Sender: FDA-Public Use
  Company Number: PHHY2011US89712

PATIENT
  Sex: Female
  Weight: 78.3 kg

DRUGS (6)
  1. MYFORTIC [Suspect]
     Indication: RENAL TRANSPLANT
     Dosage: 360 MG, BID
     Route: 048
     Dates: start: 20080401, end: 20090523
  2. PREDNISONE [Concomitant]
     Indication: RENAL TRANSPLANT
     Dosage: 10 MG, QD
     Route: 048
     Dates: start: 20080401, end: 20090523
  3. PROGRAF [Concomitant]
     Indication: RENAL TRANSPLANT
     Dosage: 2 MG, BID
     Route: 048
     Dates: start: 20080401, end: 20090523
  4. TYLENOL-500 [Concomitant]
     Indication: PAIN
     Dosage: 1 DF, Q4H
     Dates: start: 20090519
  5. WARFARIN SODIUM [Concomitant]
     Indication: ANTICOAGULATION DRUG LEVEL
     Dosage: 5 UKN, QD
     Dates: start: 20081225
  6. VENLAFAXINE [Concomitant]
     Indication: DEPRESSION
     Dosage: 75 MG, QD
     Dates: start: 20080401

REACTIONS (11)
  - RENAL FAILURE CHRONIC [None]
  - RENAL FAILURE ACUTE [None]
  - SWELLING FACE [None]
  - CHRONIC ALLOGRAFT NEPHROPATHY [None]
  - JUGULAR VEIN THROMBOSIS [None]
  - RENAL FAILURE [None]
  - RENAL IMPAIRMENT [None]
  - RENAL TUBULAR ATROPHY [None]
  - COMPLICATIONS OF TRANSPLANTED KIDNEY [None]
  - KIDNEY TRANSPLANT REJECTION [None]
  - KIDNEY FIBROSIS [None]
